FAERS Safety Report 21406138 (Version 1)
Quarter: 2022Q4

REPORT INFORMATION
  Report Type: Spontaneous
  Country: IT (occurrence: IT)
  Receive Date: 20221004
  Receipt Date: 20221004
  Transmission Date: 20230113
  Serious: Yes (Other)
  Sender: FDA-Public Use
  Company Number: None

PATIENT
  Age: 47 Year
  Sex: Female
  Weight: 70 kg

DRUGS (6)
  1. ONTRUZANT [Suspect]
     Active Substance: TRASTUZUMAB-DTTB
     Indication: Breast cancer recurrent
     Dosage: 420 MG/DOSE EVERY 21 DAYS
     Route: 041
     Dates: start: 20220421
  2. PERJETA [Suspect]
     Active Substance: PERTUZUMAB
     Indication: Breast cancer recurrent
     Dosage: 420 MG/DOSE EVERY 21 DAYS
     Route: 041
     Dates: start: 20220421
  3. DOCETAXEL [Suspect]
     Active Substance: DOCETAXEL
     Indication: Breast cancer recurrent
     Dosage: 135 MG/DOSE EVERY 21 DAYS
     Route: 041
     Dates: start: 20220421, end: 20220512
  4. TAMOXIFEN [Concomitant]
     Active Substance: TAMOXIFEN
     Indication: Breast cancer stage IV
     Dosage: 10 MG/DAY
     Route: 048
     Dates: start: 2018
  5. LEUPROLIDE ACETATE [Concomitant]
     Active Substance: LEUPROLIDE ACETATE
     Indication: Invasive ductal breast carcinoma
     Dosage: UNKNOWN
     Route: 065
     Dates: end: 20220319
  6. TAXOTERE [Concomitant]
     Active Substance: DOCETAXEL
     Indication: Invasive ductal breast carcinoma
     Dosage: UNKNOWN
     Route: 065
     Dates: end: 20220319

REACTIONS (5)
  - Throat tightness [Recovered/Resolved]
  - Wheezing [Recovered/Resolved]
  - Blood pressure increased [Recovered/Resolved]
  - Erythema [Recovered/Resolved]
  - Headache [Unknown]

NARRATIVE: CASE EVENT DATE: 20220512
